FAERS Safety Report 7864794-5 (Version None)
Quarter: 2011Q4

REPORT INFORMATION
  Report Type: 
  Country: None (occurrence: None)
  Receive Date: 20111028
  Receipt Date: 20101116
  Transmission Date: 20120403
  Serious: No
  Sender: FDA-Public Use
  Company Number: US-GLAXOSMITHKLINE-A0809327A

PATIENT
  Age: 66 Year
  Sex: Female

DRUGS (5)
  1. ADVAIR DISKUS 100/50 [Suspect]
     Indication: CHRONIC OBSTRUCTIVE PULMONARY DISEASE
     Dosage: 1PUFF TWICE PER DAY
     Route: 055
     Dates: start: 20090701
  2. IBUPROFEN (ADVIL) [Concomitant]
  3. ALENDRONATE SODIUM [Concomitant]
  4. CALCIUM CARBONATE [Concomitant]
  5. SODIUM CHLORIDE 0.9% [Concomitant]
     Indication: ILL-DEFINED DISORDER
     Route: 045

REACTIONS (7)
  - NASOPHARYNGITIS [None]
  - THROAT IRRITATION [None]
  - EAR PAIN [None]
  - OROPHARYNGEAL PAIN [None]
  - SINUSITIS [None]
  - PRODUCT QUALITY ISSUE [None]
  - DIZZINESS [None]
